FAERS Safety Report 17208172 (Version 1)
Quarter: 2019Q4

REPORT INFORMATION
  Report Type: Report from Study
  Country: GB (occurrence: GB)
  Receive Date: 20191227
  Receipt Date: 20191227
  Transmission Date: 20200122
  Serious: Yes (Hospitalization)
  Sender: FDA-Public Use
  Company Number: NVSC2019GB076851

PATIENT
  Age: 35 Year
  Sex: Female
  Weight: 50.25 kg

DRUGS (15)
  1. SENOKOT [Concomitant]
     Active Substance: SENNOSIDES
     Indication: CONSTIPATION
     Dosage: UNK
     Route: 048
     Dates: start: 20191119
  2. MOVICOL [Concomitant]
     Active Substance: POLYETHYLENE GLYCOL 3350\POTASSIUM CHLORIDE\SODIUM BICARBONATE\SODIUM CHLORIDE
     Indication: CONSTIPATION
     Dosage: UNK
     Route: 048
     Dates: start: 20191125
  3. 5-FLUOROURACIL [Suspect]
     Active Substance: FLUOROURACIL
     Indication: COLORECTAL CANCER
     Dosage: UNK
     Route: 042
     Dates: start: 20191212
  4. ORAMORPH [Concomitant]
     Active Substance: MORPHINE SULFATE
     Indication: HEPATIC PAIN
     Dosage: UNK
     Route: 048
     Dates: start: 20191123
  5. HALOPERIDOL. [Concomitant]
     Active Substance: HALOPERIDOL
     Indication: NAUSEA
     Dosage: UNK
     Route: 058
     Dates: start: 20191220
  6. CYCLIZINE [Concomitant]
     Active Substance: CYCLIZINE
     Indication: NAUSEA
     Dosage: UNK
     Route: 048
     Dates: start: 20191120
  7. MST [Concomitant]
     Indication: HEPATIC PAIN
     Dosage: UNK
     Route: 065
     Dates: start: 20191121, end: 20191203
  8. LEUCOVORIN. [Suspect]
     Active Substance: LEUCOVORIN
     Indication: COLORECTAL CANCER
     Dosage: UNK
     Route: 042
     Dates: start: 20191212
  9. PARACETAMOL [Concomitant]
     Active Substance: ACETAMINOPHEN
     Indication: ABDOMINAL PAIN
     Dosage: UNK
     Route: 048
     Dates: start: 20191101
  10. DEXAMETHASONE. [Concomitant]
     Active Substance: DEXAMETHASONE
     Indication: HEPATIC PAIN
     Dosage: UNK
     Route: 065
     Dates: start: 20191122
  11. MST [Concomitant]
     Dosage: UNK
     Route: 065
     Dates: start: 20191203, end: 20191220
  12. GEVOKIZUMAB [Suspect]
     Active Substance: GEVOKIZUMAB
     Indication: COLORECTAL CANCER
     Dosage: UNK
     Route: 042
     Dates: start: 20191126
  13. NYSTATIN. [Concomitant]
     Active Substance: NYSTATIN
     Indication: ORAL CANDIDIASIS
     Route: 065
     Dates: start: 20191210, end: 20191217
  14. OXALIPLATIN. [Suspect]
     Active Substance: OXALIPLATIN
     Indication: COLORECTAL CANCER
     Dosage: UNK
     Route: 042
     Dates: start: 20191212
  15. BEVACIZUMAB. [Suspect]
     Active Substance: BEVACIZUMAB
     Indication: COLORECTAL CANCER
     Dosage: UNK
     Route: 042
     Dates: start: 20191212

REACTIONS (1)
  - Neck pain [Unknown]

NARRATIVE: CASE EVENT DATE: 20191219
